FAERS Safety Report 10967603 (Version 1)
Quarter: 2015Q1

REPORT INFORMATION
  Report Type: Other
  Country: GB (occurrence: GB)
  Receive Date: 20150330
  Receipt Date: 20150330
  Transmission Date: 20150721
  Serious: Yes (Other)
  Sender: FDA-Public Use
  Company Number: GB-MYLANLABS-2015M1008621

PATIENT

DRUGS (7)
  1. ANUSOL [Concomitant]
     Dosage: APPLY TWICE A DAY AFTER A BOWEL MOVEMENT
     Dates: start: 20141121
  2. INDORAMIN [Concomitant]
     Active Substance: INDORAMIN
     Dosage: 1 DF, QD
     Dates: start: 20141121
  3. LOSARTAN [Suspect]
     Active Substance: LOSARTAN
     Dosage: 1 DF, QD
     Dates: start: 20150114
  4. GANFORT [Concomitant]
     Active Substance: BIMATOPROST\TIMOLOL
     Dosage: 2 DF, QD (ONE DROP ONCE DAILY BOTH EYES.)
     Route: 050
     Dates: start: 20141121
  5. ADCAL [Concomitant]
     Dosage: 2 DF, BID
     Dates: start: 20141121
  6. RAMIPRIL. [Concomitant]
     Active Substance: RAMIPRIL
     Dosage: 2 DAILY UNTIL 1ST JAN 2015 THEN 3 DAILY
     Dates: start: 20141121, end: 20150114
  7. ASPIRIN                            /00002701/ [Concomitant]
     Active Substance: ASPIRIN
     Dosage: 1 DF, QD
     Dates: start: 20141121

REACTIONS (1)
  - Visual impairment [Recovered/Resolved]

NARRATIVE: CASE EVENT DATE: 20150129
